FAERS Safety Report 4707561-3 (Version None)
Quarter: 2005Q3

REPORT INFORMATION
  Report Type: 
  Country: None (occurrence: None)
  Receive Date: 20050706
  Receipt Date: 20050622
  Transmission Date: 20060218
  Serious: Yes (Disabling, Other)
  Sender: FDA-Public Use
  Company Number: JP-JNJFOC-20050501905

PATIENT
  Age: 57 Year
  Sex: Male

DRUGS (5)
  1. TAVANIC [Suspect]
     Indication: INFECTION PROPHYLAXIS
     Route: 049
     Dates: start: 20050426, end: 20050428
  2. TAVANIC [Suspect]
     Route: 049
     Dates: start: 20050426, end: 20050428
  3. EYE DROPS [Concomitant]
     Indication: GLAUCOMA
  4. XALATAN [Concomitant]
  5. TRUSOPT [Concomitant]

REACTIONS (5)
  - BACK PAIN [None]
  - DRUG INEFFECTIVE [None]
  - HEADACHE [None]
  - MYALGIA [None]
  - SPINAL DISORDER [None]
